FAERS Safety Report 8814318 (Version 3)
Quarter: 2012Q4

REPORT INFORMATION
  Report Type: 
  Country: ES (occurrence: ES)
  Receive Date: 20120928
  Receipt Date: 20121025
  Transmission Date: 20130627
  Serious: Yes (Hospitalization)
  Sender: FDA-Public Use
  Company Number: ES-BRISTOL-MYERS SQUIBB COMPANY-16985749

PATIENT
  Age: 68 Year
  Sex: Female

DRUGS (8)
  1. DASATINIB [Suspect]
     Indication: CHRONIC MYELOID LEUKAEMIA
     Route: 048
     Dates: start: 20110913, end: 20120717
  2. PARACETAMOL [Concomitant]
  3. RANITIDINE [Concomitant]
  4. ALLOPURINOL [Concomitant]
  5. DICLOFENAC [Concomitant]
  6. PREVENCOR [Concomitant]
  7. ACFOL [Concomitant]
  8. METHOTREXATE [Concomitant]

REACTIONS (1)
  - Pleuropericarditis [Recovered/Resolved]
